FAERS Safety Report 24332816 (Version 1)
Quarter: 2024Q3

REPORT INFORMATION
  Report Type: Spontaneous
  Country: US (occurrence: US)
  Receive Date: 20240918
  Receipt Date: 20240918
  Transmission Date: 20241017
  Serious: No
  Sender: Haleon PLC
  Company Number: US-HALEON-2197219

PATIENT
  Age: 31 Year
  Sex: Male

DRUGS (3)
  1. NICOTINE [Suspect]
     Active Substance: NICOTINE
     Indication: Smoking cessation therapy
     Dosage: FOR THE FIRST MONTH
  2. NICOTINE [Suspect]
     Active Substance: NICOTINE
     Dosage: FOR THE SECOND MONTH
  3. NICOTINE [Suspect]
     Active Substance: NICOTINE
     Dosage: WITH THE FINAL TRANSITION

REACTIONS (1)
  - Product dose omission issue [Unknown]
